FAERS Safety Report 16310744 (Version 2)
Quarter: 2021Q1

REPORT INFORMATION
  Report Type: Spontaneous
  Country: US (occurrence: US)
  Receive Date: 20190514
  Receipt Date: 20210211
  Transmission Date: 20210419
  Serious: Yes (Other)
  Sender: FDA-Public Use
  Company Number: US-ASTRAZENECA-2019SE67012

PATIENT
  Age: 23656 Day
  Sex: Male
  Weight: 122.5 kg

DRUGS (42)
  1. HALOPERIDOL. [Concomitant]
     Active Substance: HALOPERIDOL
  2. HALDOL [Concomitant]
     Active Substance: HALOPERIDOL
  3. CRESTOR [Concomitant]
     Active Substance: ROSUVASTATIN CALCIUM
  4. DIPHENHYDRAMINE. [Concomitant]
     Active Substance: DIPHENHYDRAMINE
  5. CEFTRIAXONE. [Concomitant]
     Active Substance: CEFTRIAXONE
  6. PANTOPRAZOLE [Suspect]
     Active Substance: PANTOPRAZOLE
     Indication: GASTROOESOPHAGEAL REFLUX DISEASE
     Dosage: 40 MG IV
     Route: 065
     Dates: start: 201406
  7. NIFEDIPINE. [Concomitant]
     Active Substance: NIFEDIPINE
  8. ATROPINE. [Concomitant]
     Active Substance: ATROPINE
  9. SPIRONOLACTONE. [Concomitant]
     Active Substance: SPIRONOLACTONE
  10. ALDACTONE [Concomitant]
     Active Substance: SPIRONOLACTONE
  11. LISINOPRIL. [Concomitant]
     Active Substance: LISINOPRIL
     Indication: HYPERTENSION
     Dates: start: 201705, end: 201709
  12. LABETALOL [Concomitant]
     Active Substance: LABETALOL\LABETALOL HYDROCHLORIDE
  13. LACTULOSE. [Concomitant]
     Active Substance: LACTULOSE
  14. IPRATROPIUM [Concomitant]
     Active Substance: IPRATROPIUM
  15. HEPARIN [Concomitant]
     Active Substance: HEPARIN SODIUM
  16. IOVERSOL [Concomitant]
     Active Substance: IOVERSOL
  17. CARVEDILOL. [Concomitant]
     Active Substance: CARVEDILOL
  18. MORPHINE [Concomitant]
     Active Substance: MORPHINE
  19. VERAPAMIL [Concomitant]
     Active Substance: VERAPAMIL HYDROCHLORIDE
  20. PROCARDIA [Concomitant]
     Active Substance: NIFEDIPINE
  21. ATIVAN [Concomitant]
     Active Substance: LORAZEPAM
  22. FENTANYL. [Concomitant]
     Active Substance: FENTANYL
  23. NEXIUM [Suspect]
     Active Substance: ESOMEPRAZOLE MAGNESIUM
     Indication: GASTROOESOPHAGEAL REFLUX DISEASE
     Route: 048
     Dates: start: 201406, end: 2017
  24. ONDANSETRON [Concomitant]
     Active Substance: ONDANSETRON
  25. THIAMINE. [Concomitant]
     Active Substance: THIAMINE
  26. FUROSEMIDE. [Concomitant]
     Active Substance: FUROSEMIDE
     Indication: FLUID RETENTION
     Dates: start: 201408, end: 201710
  27. METOPROLOL. [Concomitant]
     Active Substance: METOPROLOL
  28. ROSUVASTATIN. [Concomitant]
     Active Substance: ROSUVASTATIN
  29. TYLENOL [Concomitant]
     Active Substance: ACETAMINOPHEN
  30. VERAPAMIL [Concomitant]
     Active Substance: VERAPAMIL HYDROCHLORIDE
  31. NEXIUM [Suspect]
     Active Substance: ESOMEPRAZOLE MAGNESIUM
     Indication: GASTROOESOPHAGEAL REFLUX DISEASE
     Route: 048
     Dates: start: 20140717
  32. OXYCODONE [Concomitant]
     Active Substance: OXYCODONE
  33. ASPIRIN. [Concomitant]
     Active Substance: ASPIRIN
  34. ENALAPRILAT. [Concomitant]
     Active Substance: ENALAPRILAT
  35. PROTONIX [Suspect]
     Active Substance: PANTOPRAZOLE SODIUM
     Indication: GASTROOESOPHAGEAL REFLUX DISEASE
     Dosage: 40 MG IV DAILY
     Route: 065
     Dates: start: 201406
  36. NITROGLYCERIN. [Concomitant]
     Active Substance: NITROGLYCERIN
  37. ACETAMINOPHEN. [Concomitant]
     Active Substance: ACETAMINOPHEN
  38. VASOTEC [Concomitant]
     Active Substance: ENALAPRIL MALEATE
  39. RISPERIDONE. [Concomitant]
     Active Substance: RISPERIDONE
  40. POTASSIUM CHLORIDE. [Concomitant]
     Active Substance: POTASSIUM CHLORIDE
  41. TROLAMINE [Concomitant]
     Active Substance: TROLAMINE
  42. ZOFRAN [Concomitant]
     Active Substance: ONDANSETRON HYDROCHLORIDE

REACTIONS (3)
  - Acute kidney injury [Not Recovered/Not Resolved]
  - Chronic kidney disease [Not Recovered/Not Resolved]
  - Renal failure [Unknown]

NARRATIVE: CASE EVENT DATE: 20140717
